FAERS Safety Report 5346301-4 (Version None)
Quarter: 2007Q2

REPORT INFORMATION
  Report Type: 
  Country: None (occurrence: None)
  Receive Date: 20070420
  Receipt Date: 20061019
  Transmission Date: 20071010
  Serious: Yes (Death)
  Sender: FDA-Public Use
  Company Number: 06P-163-03448667-00

PATIENT
  Age: 54 Year
  Sex: Female

DRUGS (5)
  1. DEPAKOTE [Suspect]
     Indication: PAIN
  2. VICODIN [Suspect]
     Indication: PAIN
  3. TRAMADOL HCL [Suspect]
     Indication: PAIN
  4. LUNESTA [Suspect]
     Indication: PAIN
  5. INTERFERON BETA [Suspect]
     Indication: MULTIPLE SCLEROSIS
     Dates: start: 20060602, end: 20060726

REACTIONS (2)
  - ACCIDENTAL OVERDOSE [None]
  - VOMITING [None]
